FAERS Safety Report 7702006-3 (Version None)
Quarter: 2011Q3

REPORT INFORMATION
  Report Type: 
  Country: None (occurrence: None)
  Receive Date: 20110822
  Receipt Date: 20110817
  Transmission Date: 20111222
  Serious: Yes (Death, Hospitalization, Other)
  Sender: FDA-Public Use
  Company Number: PHEH2008US03145

PATIENT
  Sex: Female

DRUGS (42)
  1. ZOMETA [Suspect]
     Dosage: MONTHLY
     Dates: start: 20050701
  2. METHADONE HYDROCHLORIDE [Concomitant]
  3. DOXORUBICIN HCL [Concomitant]
  4. LIDODERM [Concomitant]
     Dosage: 5 %,
     Route: 061
  5. SULFAMETHOXYPYRAZINE/TRIMETHOPRIM [Concomitant]
     Dosage: 800-160 MG,
     Route: 048
  6. BACLOFEN [Concomitant]
     Dosage: 20 MG,
     Route: 048
  7. AMBIEN [Concomitant]
     Dosage: 6.25 MG,
     Route: 048
  8. DEXAMETHASONE [Concomitant]
  9. NIFEREX (POLYSACCHARIDE-IRON COMPLEX) [Concomitant]
  10. PROCHLORPERAZINE [Concomitant]
     Dosage: 10 MG,
     Route: 048
  11. GABAPENTIN [Suspect]
     Dosage: 300
     Route: 048
  12. LORAZEPAM [Concomitant]
     Dosage: 2 MG,
     Route: 048
  13. IBUPROFEN [Concomitant]
     Dosage: 800 MG,
     Route: 048
  14. POLYETHYLENE GLYCOL [Concomitant]
     Route: 048
  15. MILK OF MAGNESIA TAB [Concomitant]
     Route: 048
  16. OXYCONTIN [Concomitant]
  17. QUADRAMET [Concomitant]
  18. AREDIA [Suspect]
  19. METRONIDAZOL ^ALPHARMA^ [Concomitant]
  20. EFFEXOR XR [Concomitant]
     Dosage: 75 MG,
     Route: 048
  21. PEN-VEE K [Concomitant]
  22. FENTANYL [Concomitant]
  23. OXYCODONE HCL [Concomitant]
  24. DIAZEPAM [Concomitant]
     Dosage: 5 MG, PRN
     Route: 048
  25. MORPHINE [Concomitant]
     Dosage: 30 MG,
     Route: 048
  26. GEMCITABINE HYDROCHLORIDE [Concomitant]
  27. ZANAFLEX [Concomitant]
     Dosage: 2 MG,
     Route: 048
  28. METOPROLOL SUCCINATE [Concomitant]
     Dosage: 100 MG,
     Route: 048
  29. MORPHINE SULFATE [Concomitant]
  30. AMOXICILLIN [Concomitant]
  31. CYTOXAN [Concomitant]
  32. XELODA [Concomitant]
     Dosage: 500 MG,
     Route: 048
  33. DILAUDID [Concomitant]
  34. MIDRIN [Concomitant]
  35. MULTI-VITAMINS [Concomitant]
  36. ZITHROMAX [Concomitant]
  37. LYRICA [Concomitant]
     Dosage: 100 MG,
     Route: 048
  38. TEMAZEPAM [Concomitant]
     Dosage: 15 MG,
     Route: 048
  39. HERCEPTIN [Concomitant]
  40. ZOLADEX [Concomitant]
  41. VALIUM [Concomitant]
  42. FEMARA [Concomitant]

REACTIONS (63)
  - SCAR [None]
  - FAECAL INCONTINENCE [None]
  - SYNCOPE [None]
  - OSTEOPOROSIS [None]
  - CONVULSION [None]
  - PNEUMONIA [None]
  - LIGAMENT SPRAIN [None]
  - HYPOAESTHESIA [None]
  - DEATH [None]
  - BEDRIDDEN [None]
  - ATELECTASIS [None]
  - FEMUR FRACTURE [None]
  - ARTHRALGIA [None]
  - PAIN IN EXTREMITY [None]
  - INTERVERTEBRAL DISC DEGENERATION [None]
  - ARTHRITIS [None]
  - DEPRESSION [None]
  - PARAPLEGIA [None]
  - SPINAL OSTEOARTHRITIS [None]
  - INJURY [None]
  - PHYSICAL DISABILITY [None]
  - PATHOLOGICAL FRACTURE [None]
  - INSOMNIA [None]
  - NEUTROPENIA [None]
  - HYPERTENSION [None]
  - METASTASES TO SPINE [None]
  - MUSCLE SPASMS [None]
  - CONSTIPATION [None]
  - KYPHOSIS [None]
  - ASTHENIA [None]
  - OSTEOPENIA [None]
  - DIARRHOEA [None]
  - LETHARGY [None]
  - SPINAL FRACTURE [None]
  - OVERDOSE [None]
  - METASTASES TO LIVER [None]
  - COMPRESSION FRACTURE [None]
  - PELVIC FRACTURE [None]
  - BACK PAIN [None]
  - LUNG INFILTRATION [None]
  - DELIRIUM [None]
  - OSTEONECROSIS [None]
  - FUNGAL INFECTION [None]
  - MUSCULOSKELETAL STIFFNESS [None]
  - NEUROGENIC BLADDER [None]
  - CHRONIC OBSTRUCTIVE PULMONARY DISEASE [None]
  - OSTEONECROSIS OF JAW [None]
  - PAIN [None]
  - INFECTION [None]
  - TOOTH INFECTION [None]
  - FALL [None]
  - LOSS OF CONSCIOUSNESS [None]
  - NAUSEA [None]
  - VOMITING [None]
  - CONFUSIONAL STATE [None]
  - URINARY INCONTINENCE [None]
  - EMOTIONAL DISTRESS [None]
  - ANXIETY [None]
  - DYSPNOEA [None]
  - METASTASES TO BONE [None]
  - OEDEMA PERIPHERAL [None]
  - GAIT DISTURBANCE [None]
  - SWELLING [None]
